FAERS Safety Report 11230620 (Version 1)
Quarter: 2015Q3

REPORT INFORMATION
  Report Type: Spontaneous
  Country: US (occurrence: US)
  Receive Date: 20150701
  Receipt Date: 20150701
  Transmission Date: 20151125
  Serious: No
  Sender: FDA-Public Use
  Company Number: US-PFIZER INC-2015216527

PATIENT
  Sex: Female

DRUGS (1)
  1. VENLAFAXINE HCL [Suspect]
     Active Substance: VENLAFAXINE HYDROCHLORIDE
     Dosage: 225 MG, UNK

REACTIONS (6)
  - Menopausal disorder [Unknown]
  - Anxiety [Unknown]
  - Night sweats [Unknown]
  - Social phobia [Unknown]
  - Drug ineffective [Unknown]
  - Depression [Unknown]
